FAERS Safety Report 5753055-6 (Version None)
Quarter: 2008Q2

REPORT INFORMATION
  Report Type: 
  Country: None (occurrence: None)
  Receive Date: 20080527
  Receipt Date: 20080509
  Transmission Date: 20081010
  Serious: Yes (Hospitalization)
  Sender: FDA-Public Use
  Company Number: 2008EU000882

PATIENT
  Age: 26 Year
  Sex: Male

DRUGS (11)
  1. PROGRAF [Suspect]
     Indication: STEM CELL TRANSPLANT
     Dosage: ORAL
     Route: 048
     Dates: start: 20070720, end: 20080307
  2. RAPAMUNE [Suspect]
     Indication: STEM CELL TRANSPLANT
     Dosage: 2 MG, UID/QD, ORAL
     Route: 048
     Dates: start: 20080307, end: 20080401
  3. CYCLOSPORINE [Suspect]
     Indication: STEM CELL TRANSPLANT
     Dosage: ORAL
     Route: 048
     Dates: start: 20060701, end: 20070720
  4. CELLCEPT [Concomitant]
  5. PREDNISOLONE ACETATE [Concomitant]
  6. DIFLUCAN [Concomitant]
  7. BACTRIM [Concomitant]
  8. BACTRIM [Concomitant]
  9. FAMVIR [Concomitant]
  10. PANTOPRAZOLE SODIUM [Concomitant]
  11. PERINDOPRIL ERBUMIN (PERINDOPRIL ERBUMINE) [Concomitant]

REACTIONS (6)
  - BLOOD LACTATE DEHYDROGENASE INCREASED [None]
  - HAEMOGLOBIN DECREASED [None]
  - KIDNEY FIBROSIS [None]
  - PLATELET COUNT DECREASED [None]
  - RENAL TUBULAR ATROPHY [None]
  - THROMBOTIC MICROANGIOPATHY [None]
